FAERS Safety Report 5518222-5 (Version None)
Quarter: 2007Q4

REPORT INFORMATION
  Report Type: 
  Country: None (occurrence: None)
  Receive Date: 20071115
  Receipt Date: 20071114
  Transmission Date: 20080405
  Serious: Yes (Other)
  Sender: FDA-Public Use
  Company Number: A0694620A

PATIENT
  Sex: Female

DRUGS (4)
  1. NICORETTE [Suspect]
     Indication: SMOKING CESSATION THERAPY
     Route: 002
     Dates: start: 20050101
  2. VALPROATE SODIUM [Concomitant]
  3. RIVOTRIL [Concomitant]
  4. IBANDRONATE SODIUM [Concomitant]

REACTIONS (4)
  - DIZZINESS [None]
  - LARYNGEAL OEDEMA [None]
  - MALAISE [None]
  - THROAT TIGHTNESS [None]
